FAERS Safety Report 7884818-9 (Version None)
Quarter: 2011Q4

REPORT INFORMATION
  Report Type: 
  Country: None (occurrence: None)
  Receive Date: 20111102
  Receipt Date: 20111024
  Transmission Date: 20120403
  Serious: Yes (Hospitalization, Other)
  Sender: FDA-Public Use
  Company Number: DE-ALEXION-A201100890

PATIENT
  Sex: Female
  Weight: 60 kg

DRUGS (7)
  1. PREDNISOLONE [Suspect]
     Indication: ALLERGY PROPHYLAXIS
     Dosage: 100 MG, UNK
     Route: 042
     Dates: start: 20110527, end: 20110530
  2. SOLIRIS [Suspect]
     Indication: HAEMOLYTIC URAEMIC SYNDROME
     Dosage: 900 MG UNK
     Route: 042
     Dates: start: 20110530, end: 20110613
  3. PANTOPRAZOLE SODIUM [Concomitant]
     Indication: PROPHYLAXIS AGAINST GASTROINTESTINAL ULCER
     Dosage: 40 MG UNK
     Route: 042
     Dates: start: 20110530
  4. HEPARIN [Concomitant]
     Indication: THROMBOSIS PROPHYLAXIS
     Dosage: 1500 IE UNK
     Route: 042
     Dates: start: 20110530
  5. MENCEVAX [Concomitant]
     Indication: IMMUNISATION
     Dosage: UNK
     Dates: start: 20110603, end: 20110603
  6. PHENYTOIN [Concomitant]
     Indication: EPILEPSY
     Dosage: 750 MG, UNK
     Route: 042
     Dates: start: 20110530, end: 20110624
  7. KEPPRA [Concomitant]
     Indication: EPILEPSY
     Dosage: 2000 MG, UNK
     Route: 042
     Dates: start: 20110529, end: 20110530

REACTIONS (4)
  - PLEURAL EFFUSION [None]
  - PNEUMONIA HERPES VIRAL [None]
  - SEPSIS [None]
  - RESPIRATORY FAILURE [None]
